FAERS Safety Report 11872023 (Version 2)
Quarter: 2016Q2

REPORT INFORMATION
  Report Type: Report from Study
  Country: DE (occurrence: DE)
  Receive Date: 20151228
  Receipt Date: 20160501
  Transmission Date: 20160815
  Serious: Yes (Hospitalization)
  Sender: FDA-Public Use
  Company Number: DE-BIOGEN-2015BI00165698

PATIENT
  Age: 66 Year
  Sex: Male

DRUGS (1)
  1. TECFIDERA [Suspect]
     Active Substance: DIMETHYL FUMARATE
     Indication: MULTIPLE SCLEROSIS
     Route: 048
     Dates: start: 20140410

REACTIONS (3)
  - Limb asymmetry [Not Recovered/Not Resolved]
  - Bursitis [Not Recovered/Not Resolved]
  - Femoral neck fracture [Recovered/Resolved with Sequelae]

NARRATIVE: CASE EVENT DATE: 20151023
